FAERS Safety Report 8873252 (Version 1)
Quarter: 2012Q4

REPORT INFORMATION
  Report Type: 
  Country: CO (occurrence: CO)
  Receive Date: 20121029
  Receipt Date: 20121029
  Transmission Date: 20130627
  Serious: Yes (Other)
  Sender: FDA-Public Use
  Company Number: CO-PFIZER INC-2012269091

PATIENT
  Sex: Female

DRUGS (7)
  1. OLMETEC [Suspect]
     Indication: HYPERTENSION ARTERIAL
     Dosage: 40 mg, 1x/day
     Route: 048
     Dates: start: 2009
  2. LIPITOR [Suspect]
     Indication: TRIGLYCERIDES ABNORMAL NOS
     Dosage: 40 mg, 1x/day
     Route: 048
     Dates: start: 2006
  3. LIPITOR [Suspect]
     Indication: CHOLESTEROL TOTAL ABNORMAL NOS
  4. CATAPRESAN [Concomitant]
     Indication: HYPERTENSION ARTERIAL
     Dosage: 150 mg, 2x/day
     Route: 048
     Dates: start: 2005
  5. CARDIOASPIRINA [Concomitant]
     Indication: PREVENTION
     Dosage: UNK
     Route: 048
     Dates: start: 2005
  6. INSULIN [Concomitant]
     Indication: DIABETES
     Dosage: 30 IU, 1x/day
     Route: 058
     Dates: start: 2005
  7. EUGLUCON [Concomitant]
     Dosage: 500 mg, UNK

REACTIONS (5)
  - Speech disorder [Not Recovered/Not Resolved]
  - Gait disturbance [Not Recovered/Not Resolved]
  - Muscular weakness [Not Recovered/Not Resolved]
  - Angiopathy [Not Recovered/Not Resolved]
  - Mobility decreased [Recovering/Resolving]
